FAERS Safety Report 6118914-3 (Version None)
Quarter: 2009Q1

REPORT INFORMATION
  Report Type: 
  Country: None (occurrence: None)
  Receive Date: 20090316
  Receipt Date: 20090310
  Transmission Date: 20090719
  Serious: Yes (Hospitalization, Other)
  Sender: FDA-Public Use
  Company Number: JP-BAYER-200910710BYL

PATIENT
  Age: 65 Year
  Sex: Male
  Weight: 57 kg

DRUGS (3)
  1. CIPROXAN-I.V. [Suspect]
     Indication: PERITONITIS
     Dosage: TOTAL DAILY DOSE: 600 MG  UNIT DOSE: 300 MG
     Route: 041
     Dates: start: 20080828, end: 20080830
  2. FIRSTCIN [Concomitant]
     Dosage: TOTAL DAILY DOSE: 2 G
     Route: 042
     Dates: start: 20080828, end: 20080828
  3. SULPERAZON [Concomitant]
     Dosage: TOTAL DAILY DOSE: 2 G
     Route: 042
     Dates: start: 20080901, end: 20080904

REACTIONS (2)
  - URTICARIA [None]
  - WOUND INFECTION [None]
